FAERS Safety Report 8276746-4 (Version None)
Quarter: 2012Q2

REPORT INFORMATION
  Report Type: 
  Country: None (occurrence: None)
  Receive Date: 20120405
  Receipt Date: 20120322
  Transmission Date: 20120825
  Serious: Yes (Life-Threatening, Hospitalization, Other)
  Sender: FDA-Public Use
  Company Number: 2012-027785

PATIENT
  Age: 36 Year
  Sex: Male

DRUGS (4)
  1. CAFFEINE (CAFFEINE) TABLET, 120MG [Suspect]
     Dosage: 240 MG, ONCE, ORAL
     Route: 048
  2. EPHEDRINE SULFATE + GUAIFENESIN +/- CROSCARMELLOSE SODIUM(EPHEDRINE SU [Suspect]
     Dosage: 60 MG, ONCE, ORAL
     Route: 048
  3. UNCODEABLE ^UNCLASSIFIABLE^ 9UNCODEABLE ^UNCLASSIFIABLE^) [Concomitant]
  4. ACETYLSALICYLIC ACID SRT [Suspect]
     Dosage: 60 MG, ONCE, ORAL
     Route: 048

REACTIONS (15)
  - HYPOXIA [None]
  - AGITATION [None]
  - MYDRIASIS [None]
  - HYPOGLYCAEMIA [None]
  - CONTINUOUS HAEMODIAFILTRATION [None]
  - COMA SCALE ABNORMAL [None]
  - TACHYCARDIA [None]
  - BODY TEMPERATURE INCREASED [None]
  - RENAL FAILURE ACUTE [None]
  - CIRCULATORY COLLAPSE [None]
  - HYPERHIDROSIS [None]
  - RHABDOMYOLYSIS [None]
  - TOXICITY TO VARIOUS AGENTS [None]
  - LACTIC ACIDOSIS [None]
  - GRAND MAL CONVULSION [None]
